FAERS Safety Report 6773060-0 (Version None)
Quarter: 2010Q2

REPORT INFORMATION
  Report Type: 
  Country: None (occurrence: None)
  Receive Date: 20100616
  Receipt Date: 20100610
  Transmission Date: 20101027
  Serious: Yes (Hospitalization)
  Sender: FDA-Public Use
  Company Number: FR-PFIZER INC-2010067774

PATIENT
  Age: 53 Year
  Sex: Female
  Weight: 60 kg

DRUGS (14)
  1. CAMPTOSAR [Suspect]
     Indication: ADENOCARCINOMA
     Dosage: UNK
     Dates: end: 20061001
  2. CAMPTOSAR [Suspect]
     Dosage: 290 MG/M2, CYCLIC
     Route: 042
     Dates: start: 20090219, end: 20090527
  3. SOLU-MEDROL [Suspect]
     Indication: VOMITING
     Dosage: 60 MG/M2, CYCLIC
     Route: 042
     Dates: start: 20090219, end: 20090527
  4. AVASTIN [Suspect]
     Indication: ADENOCARCINOMA
     Dosage: UNK
     Dates: end: 20061001
  5. AVASTIN [Suspect]
     Dosage: 300 MG/M2, CYCLIC
     Route: 042
     Dates: start: 20090219, end: 20090514
  6. FLUOROURACIL [Suspect]
     Indication: ADENOCARCINOMA
     Dosage: UNK
     Dates: end: 20061001
  7. FLUOROURACIL [Suspect]
     Dosage: 640 MG/M2, CYCLIC
     Route: 040
     Dates: start: 20090219, end: 20090429
  8. FLUOROURACIL [Suspect]
     Dosage: 3860 MG/M2, CYCLIC
     Route: 041
     Dates: start: 20090219, end: 20090429
  9. FLUOROURACIL [Suspect]
     Dosage: 520 MG/M2, CYCLIC
     Route: 040
     Dates: start: 20090514, end: 20090527
  10. FLUOROURACIL [Suspect]
     Dosage: 3080 MG/M2, CYCLIC
     Route: 041
     Dates: start: 20090514, end: 20090527
  11. CALCIUM FOLINATE [Suspect]
     Indication: ADENOCARCINOMA
     Dosage: UNK
     Dates: end: 20061001
  12. CALCIUM FOLINATE [Suspect]
     Dosage: 640 MG/M2, CYCLIC
     Route: 042
     Dates: start: 20090219, end: 20090429
  13. CALCIUM FOLINATE [Suspect]
     Dosage: 520 MG/M2, CYCLIC
     Route: 042
     Dates: start: 20090514, end: 20090527
  14. ZOPHREN [Suspect]
     Indication: VOMITING
     Dosage: 8 MG/M2, CYCLIC
     Route: 048
     Dates: start: 20090219, end: 20090527

REACTIONS (1)
  - ERYTHROSIS [None]
